FAERS Safety Report 5661796-4 (Version None)
Quarter: 2008Q1

REPORT INFORMATION
  Report Type: 
  Country: None (occurrence: None)
  Receive Date: 20080312
  Receipt Date: 20080219
  Transmission Date: 20080703
  Serious: Yes (Death)
  Sender: FDA-Public Use
  Company Number: MX-BAYER-200812067LA

PATIENT
  Age: 53 Year
  Sex: Male

DRUGS (4)
  1. MAB CAMPATH [Suspect]
     Indication: ACUTE GRAFT VERSUS HOST DISEASE
     Route: 058
  2. TRIMETHOPRIM-SULPHAMETHOXAZOLE [Concomitant]
     Indication: PNEUMOCYSTIS JIROVECI INFECTION
     Route: 065
  3. FLUCONAZOLE [Concomitant]
     Indication: ANTIFUNGAL PROPHYLAXIS
     Route: 065
  4. ACYCLOVIR [Concomitant]
     Indication: ANTIVIRAL PROPHYLAXIS
     Route: 065

REACTIONS (1)
  - GRAFT VERSUS HOST DISEASE [None]
